FAERS Safety Report 24760201 (Version 1)
Quarter: 2024Q4

REPORT INFORMATION
  Report Type: Spontaneous
  Country: US (occurrence: US)
  Receive Date: 20241220
  Receipt Date: 20241220
  Transmission Date: 20250115
  Serious: No
  Sender: NOVARTIS
  Company Number: US-002147023-NVSC2024US237668

PATIENT
  Age: 45 Year
  Sex: Female

DRUGS (1)
  1. KESIMPTA [Suspect]
     Active Substance: OFATUMUMAB
     Indication: Product used for unknown indication
     Dosage: UNK
     Route: 065
     Dates: start: 2022

REACTIONS (7)
  - Central nervous system lesion [Unknown]
  - Paraesthesia [Unknown]
  - Feeling abnormal [Unknown]
  - Phantom vibration syndrome [Unknown]
  - Fatigue [Unknown]
  - Muscle spasms [Unknown]
  - Motor dysfunction [Unknown]
